FAERS Safety Report 16394104 (Version 3)
Quarter: 2019Q4

REPORT INFORMATION
  Report Type: Report from Study
  Country: US (occurrence: US)
  Receive Date: 20190605
  Receipt Date: 20191203
  Transmission Date: 20200122
  Serious: Yes (Other)
  Sender: FDA-Public Use
  Company Number: PHEH2019US023221

PATIENT
  Sex: Female

DRUGS (1)
  1. ENTRESTO [Suspect]
     Active Substance: SACUBITRIL\VALSARTAN
     Indication: PRODUCT USED FOR UNKNOWN INDICATION
     Dosage: 100 MG (SACUBITRIL 49MG/VALSARTAN 51MG), BID
     Route: 048
     Dates: start: 20190702

REACTIONS (7)
  - Blindness [Unknown]
  - Abdominal pain upper [Recovering/Resolving]
  - Headache [Unknown]
  - Dry throat [Unknown]
  - Cough [Unknown]
  - Dry mouth [Not Recovered/Not Resolved]
  - Throat irritation [Unknown]
